FAERS Safety Report 16503209 (Version 1)
Quarter: 2019Q3

REPORT INFORMATION
  Report Type: Spontaneous
  Country: CN (occurrence: CN)
  Receive Date: 20190701
  Receipt Date: 20190701
  Transmission Date: 20191004
  Serious: Yes (Other)
  Sender: FDA-Public Use
  Company Number: CN-BAYER-2019-086017

PATIENT
  Sex: Female

DRUGS (2)
  1. MIRENA [Suspect]
     Active Substance: LEVONORGESTREL
  2. MIRENA [Suspect]
     Active Substance: LEVONORGESTREL
     Dosage: 20 MCG/24HR, CONT
     Route: 015
     Dates: start: 201208, end: 20190601

REACTIONS (8)
  - Ovarian cyst [None]
  - Genital tract inflammation [Recovering/Resolving]
  - Polymenorrhoea [Recovered/Resolved]
  - Menstruation delayed [Recovered/Resolved]
  - Hyperthyroidism [None]
  - Uterine leiomyoma [Not Recovered/Not Resolved]
  - Device use issue [None]
  - Hypomenorrhoea [Recovered/Resolved]

NARRATIVE: CASE EVENT DATE: 2013
